FAERS Safety Report 14112506 (Version 1)
Quarter: 2017Q4

REPORT INFORMATION
  Report Type: Spontaneous
  Country: US (occurrence: US)
  Receive Date: 20171020
  Receipt Date: 20171020
  Transmission Date: 20180321
  Serious: No
  Sender: FDA-Public Use
  Company Number: US-TEIKOKU PHARMA USA-TPU2017-00617

PATIENT
  Age: 38 Year
  Sex: Female
  Weight: 72.64 kg

DRUGS (2)
  1. LIDOCAINE PATCH [Suspect]
     Active Substance: LIDOCAINE
     Indication: ARTHRALGIA
     Dosage: ONE PATCH APPLIED TO BASE OF BACK TOWARD RIGHT SIDE FOR 10 TO 12 HOURS ON.
     Dates: start: 20171004
  2. LIDOCAINE PATCH [Suspect]
     Active Substance: LIDOCAINE
     Indication: BACK PAIN
     Dosage: PATCH APPLIED TO LEFT KNEE ON BOTH SIDES
     Dates: start: 2016

REACTIONS (1)
  - Drug ineffective for unapproved indication [Unknown]

NARRATIVE: CASE EVENT DATE: 20171004
